FAERS Safety Report 6165107-X (Version None)
Quarter: 2009Q2

REPORT INFORMATION
  Report Type: 
  Country: None (occurrence: None)
  Receive Date: 20090421
  Receipt Date: 20090421
  Transmission Date: 20091009
  Serious: No
  Sender: FDA-Public Use
  Company Number: None

PATIENT
  Age: 49 Year
  Sex: Female
  Weight: 48.5349 kg

DRUGS (2)
  1. LIDODERM [Suspect]
     Indication: BACK PAIN
     Dosage: 5% DAILY OTHER
     Route: 050
     Dates: start: 20030401, end: 20090420
  2. LIDODERM [Suspect]
     Indication: FIBROMYALGIA
     Dosage: 5% DAILY OTHER
     Route: 050
     Dates: start: 20030401, end: 20090420

REACTIONS (12)
  - APPLICATION SITE ERYTHEMA [None]
  - APPLICATION SITE PAIN [None]
  - CHEST DISCOMFORT [None]
  - CHEST PAIN [None]
  - DYSPHAGIA [None]
  - DYSPNOEA [None]
  - HEADACHE [None]
  - HYPOAESTHESIA [None]
  - HYPOAESTHESIA FACIAL [None]
  - MALAISE [None]
  - NECK PAIN [None]
  - PAIN IN EXTREMITY [None]
